FAERS Safety Report 7480682-0 (Version None)
Quarter: 2011Q2

REPORT INFORMATION
  Report Type: 
  Country: None (occurrence: None)
  Receive Date: 20110516
  Receipt Date: 20101123
  Transmission Date: 20111010
  Serious: Yes (Other)
  Sender: FDA-Public Use
  Company Number: US-BAYER-201029053NA

PATIENT
  Age: 23 Year
  Sex: Female
  Weight: 72.562 kg

DRUGS (10)
  1. MINI-PILL [Concomitant]
     Dosage: UNK
     Dates: start: 20070501, end: 20070701
  2. IMITREX [Concomitant]
     Indication: MIGRAINE
     Dosage: 100 MG, UNK
  3. PRENATAL VITAMINS [Concomitant]
     Dosage: UNK
     Dates: start: 20070101
  4. TOPAMAX [Concomitant]
     Indication: MIGRAINE
     Dosage: 50 MG, BID
     Route: 048
     Dates: start: 20060703
  5. YAZ [Suspect]
     Indication: PREMENSTRUAL SYNDROME
     Route: 048
     Dates: start: 20040101, end: 20090615
  6. YASMIN [Suspect]
     Indication: PRODUCT USED FOR UNKNOWN INDICATION
     Dosage: UNK UNK, UNK
     Route: 048
     Dates: start: 20040101, end: 20090101
  7. ANTIBIOTICS [Concomitant]
  8. GABAPENTIN [Concomitant]
     Dosage: 500 MG, UNK
     Dates: start: 20040501
  9. VICODIN [Concomitant]
     Indication: PAIN
  10. BIAXIN [Concomitant]
     Dosage: 500 MG, BID
     Route: 048
     Dates: start: 20060703

REACTIONS (7)
  - CHOLELITHIASIS [None]
  - ABDOMINAL PAIN [None]
  - ABDOMINAL PAIN UPPER [None]
  - ABDOMINAL TENDERNESS [None]
  - GALLBLADDER CHOLESTEROLOSIS [None]
  - ABDOMINAL HERNIA [None]
  - CHOLECYSTITIS CHRONIC [None]
